FAERS Safety Report 5121160-3 (Version None)
Quarter: 2006Q4

REPORT INFORMATION
  Report Type: 
  Country: None (occurrence: None)
  Receive Date: 20061002
  Receipt Date: 20060921
  Transmission Date: 20070319
  Serious: Yes (Hospitalization)
  Sender: FDA-Public Use
  Company Number: 2006BH013604

PATIENT
  Age: 70 Year
  Sex: Female
  Weight: 38.1022 kg

DRUGS (1)
  1. DIANEAL [Suspect]
     Indication: PERITONEAL DIALYSIS
     Dosage: IP
     Route: 033

REACTIONS (6)
  - BACTEROIDES INFECTION [None]
  - CANDIDIASIS [None]
  - ESCHERICHIA INFECTION [None]
  - FUNGAL PERITONITIS [None]
  - PERITONITIS BACTERIAL [None]
  - WRONG TECHNIQUE IN DRUG USAGE PROCESS [None]
